FAERS Safety Report 6860235-5 (Version None)
Quarter: 2010Q3

REPORT INFORMATION
  Report Type: 
  Country: None (occurrence: None)
  Receive Date: 20100720
  Receipt Date: 20100707
  Transmission Date: 20110219
  Serious: Yes (Other)
  Sender: FDA-Public Use
  Company Number: PHHY2010FR44981

PATIENT
  Sex: Female

DRUGS (1)
  1. EXFORGE [Suspect]
     Indication: HYPERTENSION
     Dosage: 80/5 MG, (ONCE PER DAY)

REACTIONS (3)
  - EXTRASYSTOLES [None]
  - EXTREMITY NECROSIS [None]
  - PAIN IN EXTREMITY [None]
